FAERS Safety Report 4668549-4 (Version None)
Quarter: 2005Q2

REPORT INFORMATION
  Report Type: 
  Country: None (occurrence: None)
  Receive Date: 20050518
  Receipt Date: 20050426
  Transmission Date: 20051028
  Serious: Yes (Hospitalization)
  Sender: FDA-Public Use
  Company Number: B0359823A

PATIENT
  Sex: Male

DRUGS (8)
  1. PAXIL [Suspect]
  2. ETHANOL (ALCOHOL) [Suspect]
  3. THIORIDAZINE HCL [Concomitant]
  4. ZOLPIDEM [Concomitant]
  5. DISULFIRAM [Concomitant]
  6. ZOPICLONE [Concomitant]
  7. OLANZAPINE [Concomitant]
  8. PROCYCLIDINE HCL [Concomitant]

REACTIONS (11)
  - AGGRESSION [None]
  - ALCOHOL INTERACTION [None]
  - ALCOHOLISM [None]
  - ANXIETY [None]
  - DEPRESSION [None]
  - DRUG INTERACTION [None]
  - DRUG WITHDRAWAL SYNDROME [None]
  - INCORRECT DOSE ADMINISTERED [None]
  - LEGAL PROBLEM [None]
  - PANIC ATTACK [None]
  - SUICIDAL IDEATION [None]
